FAERS Safety Report 21518327 (Version 1)
Quarter: 2022Q4

REPORT INFORMATION
  Report Type: Spontaneous
  Country: US (occurrence: US)
  Receive Date: 20221028
  Receipt Date: 20221028
  Transmission Date: 20230113
  Serious: Yes (Hospitalization)
  Sender: FDA-Public Use
  Company Number: US-UNITED THERAPEUTICS-UNT-2022-021610

PATIENT
  Age: 36 Year
  Sex: Female

DRUGS (4)
  1. REMODULIN [Suspect]
     Active Substance: TREPROSTINIL
     Indication: Pulmonary arterial hypertension
     Dosage: UNK, CONTINUING
     Route: 058
     Dates: start: 20190927
  2. REMODULIN [Suspect]
     Active Substance: TREPROSTINIL
     Dosage: 0.1426 ?G/KG, CONTINUING
     Route: 058
  3. REMODULIN [Suspect]
     Active Substance: TREPROSTINIL
     Dosage: 0.138 ?G/KG, CONTINUING
     Route: 058
  4. REMODULIN [Suspect]
     Active Substance: TREPROSTINIL
     Dosage: 0.1426 ?G/KG, CONTINUING
     Route: 058

REACTIONS (3)
  - Bacterial infection [Unknown]
  - Gastric infection [Unknown]
  - Malaise [Unknown]

NARRATIVE: CASE EVENT DATE: 20220901
